FAERS Safety Report 8923168 (Version 2)
Quarter: 2013Q1

REPORT INFORMATION
  Report Type: Spontaneous
  Country: BR (occurrence: BR)
  Receive Date: 20121123
  Receipt Date: 20130110
  Transmission Date: 20140127
  Serious: Yes (Other)
  Sender: FDA-Public Use
  Company Number: PHHY2012BR105515

PATIENT
  Sex: Female

DRUGS (7)
  1. RASILEZ HCT [Suspect]
     Indication: HYPERTENSION
     Dosage: 1 DF(300 MG ALIS, 12.5 MG HYDR), QD
  2. DIOVAN HCT [Suspect]
     Indication: HYPERTENSION
     Route: 048
  3. EPEZ [Concomitant]
     Indication: DEMENTIA ALZHEIMER^S TYPE
     Dosage: 2 DF (5MG), DAILY
     Route: 048
  4. OLANZAPINE [Concomitant]
     Indication: DEMENTIA ALZHEIMER^S TYPE
     Dosage: 1 DF (2.5MG), DAILY
  5. OS-CAL [Concomitant]
     Indication: CALCIUM DEFICIENCY
     Dosage: 1 DF, DAILY
     Route: 048
  6. PURAN T4 [Concomitant]
     Indication: HYPOTHYROIDISM
     Dosage: 1 DF, DAILY
     Route: 048
  7. REDOXON ZINCO [Concomitant]
     Indication: INFLUENZA
     Route: 048

REACTIONS (3)
  - Dementia Alzheimer^s type [Not Recovered/Not Resolved]
  - Memory impairment [Not Recovered/Not Resolved]
  - Osteoarthritis [Not Recovered/Not Resolved]
